FAERS Safety Report 12482385 (Version 1)
Quarter: 2016Q2

REPORT INFORMATION
  Report Type: Spontaneous
  Country: FR (occurrence: FR)
  Receive Date: 20160620
  Receipt Date: 20160620
  Transmission Date: 20160815
  Serious: Yes (Hospitalization, Other)
  Sender: FDA-Public Use
  Company Number: FR-SA-2015SA212216

PATIENT
  Age: 53 Year
  Sex: Male
  Weight: 92 kg

DRUGS (12)
  1. SEROPLEX [Concomitant]
     Active Substance: ESCITALOPRAM OXALATE
     Route: 065
     Dates: start: 20140531
  2. PARACETAMOL [Concomitant]
     Active Substance: ACETAMINOPHEN
     Dates: start: 20150218
  3. TEMERIT [Concomitant]
     Active Substance: NEBIVOLOL
     Route: 065
     Dates: start: 20140121
  4. ASPIRINE PROTECT [Concomitant]
     Active Substance: ASPIRIN
     Route: 065
     Dates: start: 20141022
  5. TAREG [Concomitant]
     Active Substance: VALSARTAN
     Route: 065
     Dates: start: 20141022
  6. SERESTA [Concomitant]
     Active Substance: OXAZEPAM
     Route: 065
     Dates: start: 20140531, end: 20160430
  7. COLCHICINE. [Concomitant]
     Active Substance: COLCHICINE
     Dates: start: 20150402, end: 20151013
  8. TRAMADOL. [Concomitant]
     Active Substance: TRAMADOL
     Dates: start: 20151123
  9. TUSSIDANE [Concomitant]
     Active Substance: DEXTROMETHORPHAN HYDROBROMIDE
     Dates: start: 20150217, end: 20150221
  10. ENOXAPARIN SODIUM. [Suspect]
     Active Substance: ENOXAPARIN SODIUM
     Route: 065
     Dates: start: 20151123, end: 20151207
  11. DERINOX [Concomitant]
     Active Substance: NAPHAZOLINE NITRATE\PREDNISOLONE
     Dates: start: 20150218, end: 20150222
  12. INIPOMP [Concomitant]
     Active Substance: PANTOPRAZOLE SODIUM
     Route: 065
     Dates: start: 20141022

REACTIONS (2)
  - Pilonidal cyst [Not Recovered/Not Resolved]
  - Haemorrhage [Unknown]

NARRATIVE: CASE EVENT DATE: 2015
